FAERS Safety Report 8571759-7 (Version None)
Quarter: 2012Q3

REPORT INFORMATION
  Report Type: 
  Country: None (occurrence: None)
  Receive Date: 20120806
  Receipt Date: 20120802
  Transmission Date: 20120928
  Serious: Yes (Hospitalization, Other)
  Sender: FDA-Public Use
  Company Number: PHHY2010BR36631

PATIENT
  Sex: Female

DRUGS (2)
  1. DIOVAN HCT [Suspect]
     Indication: HYPERTENSION
     Dosage: 1 DF, ONCE A DAY (VALS 160MG AND HCTZ 12.5 MG)
     Route: 048
  2. RABEPRAZOLE SODIUM [Concomitant]
     Indication: HIATUS HERNIA
     Route: 048

REACTIONS (5)
  - ARRHYTHMIA [None]
  - LOSS OF CONSCIOUSNESS [None]
  - CONVULSION [None]
  - STRESS [None]
  - SOMNOLENCE [None]
